FAERS Safety Report 7037568-5 (Version None)
Quarter: 2010Q4

REPORT INFORMATION
  Report Type: 
  Country: None (occurrence: None)
  Receive Date: 20101011
  Receipt Date: 20100818
  Transmission Date: 20110411
  Serious: Yes (Other)
  Sender: FDA-Public Use
  Company Number: PHHY2010JP56037

PATIENT
  Sex: Male
  Weight: 66 kg

DRUGS (24)
  1. DIOVAN [Suspect]
     Indication: HYPERTENSION
     Dosage: 40 MG, QD
     Route: 048
     Dates: start: 20071116, end: 20071120
  2. DIOVAN [Suspect]
     Dosage: 80 MG, QD
     Route: 048
     Dates: start: 20071121, end: 20071126
  3. DIOVAN [Suspect]
     Dosage: 80 MG, BID
     Route: 048
     Dates: start: 20071127, end: 20090311
  4. ARTIST [Concomitant]
     Indication: HYPERTENSION
     Dosage: 10 MG
     Route: 048
     Dates: start: 20080302
  5. ARTIST [Concomitant]
     Dosage: 20 MG
     Dates: end: 20090311
  6. CONIEL [Concomitant]
     Indication: HYPERTENSION
     Dosage: 4MG
     Route: 048
     Dates: start: 20071123
  7. CONIEL [Concomitant]
     Dosage: 8 MG
     Route: 048
  8. CONIEL [Concomitant]
     Dosage: 12 MG
     Route: 048
     Dates: end: 20090311
  9. FLUITRAN [Concomitant]
     Indication: HYPERTENSION
     Dosage: 2 MG
     Route: 048
     Dates: start: 20090122, end: 20090311
  10. LENDORMIN [Concomitant]
     Dosage: 0.25MG
     Dates: start: 20080228, end: 20090311
  11. MYSLEE [Concomitant]
     Dosage: 5 MG
     Route: 048
     Dates: start: 20071117, end: 20080227
  12. LASIX [Concomitant]
     Dosage: 60 MG
     Route: 048
     Dates: start: 20071114, end: 20090311
  13. LIVALO [Concomitant]
     Dosage: 2 MG
     Route: 048
     Dates: start: 20071115, end: 20090311
  14. GASTER D [Concomitant]
     Dosage: 20 MG
     Route: 048
     Dates: start: 20071114, end: 20080127
  15. TAKEPRON [Concomitant]
     Dosage: 15MG
  16. GASMOTIN [Concomitant]
     Dosage: 15 MG
  17. PREDONINE [Concomitant]
     Dosage: 20 MG
  18. INNOLET N [Concomitant]
     Dosage: 18IU
  19. ASPARA K [Concomitant]
     Dosage: 600MG
  20. ASPIRIN [Concomitant]
  21. ZYLORIC [Concomitant]
     Dosage: 100MG
  22. KREMEZIN [Concomitant]
     Dosage: 4 G
     Route: 048
     Dates: start: 20081224, end: 20090311
  23. LUPRAC [Concomitant]
     Dosage: 8 MG
     Route: 048
     Dates: start: 20081224, end: 20090311
  24. ESPO [Concomitant]
     Dosage: 12000 IU
     Route: 058
     Dates: start: 20090205, end: 20090311

REACTIONS (5)
  - BLOOD CHOLESTEROL INCREASED [None]
  - BLOOD CREATININE INCREASED [None]
  - BLOOD UREA INCREASED [None]
  - HYPERTENSION [None]
  - NEPHROGENIC ANAEMIA [None]
